FAERS Safety Report 9667465 (Version 1)
Quarter: 2013Q4

REPORT INFORMATION
  Report Type: Spontaneous
  Country: US (occurrence: US)
  Receive Date: 20131101
  Receipt Date: 20131101
  Transmission Date: 20140711
  Serious: Yes (Other)
  Sender: FDA-Public Use
  Company Number: US-SAVIENT-2012S1000072

PATIENT
  Age: 45 Year
  Sex: Male
  Weight: 113.4 kg

DRUGS (10)
  1. KRYSTEXXA INJECTION [Suspect]
     Indication: GOUT
     Route: 042
     Dates: start: 20120711, end: 20120711
  2. ACETAMINOPHEN [Concomitant]
     Indication: PREMEDICATION
     Dates: start: 20120711, end: 20120711
  3. CLARITIN /00917501/ [Concomitant]
     Indication: PREMEDICATION
     Dates: start: 20120711, end: 20120711
  4. SOLU-CORTEF [Concomitant]
     Indication: PREMEDICATION
     Dates: start: 20120711, end: 20120711
  5. COLCRYS [Concomitant]
     Indication: GOUT
     Dates: start: 20120704
  6. ALLOPURINOL [Concomitant]
     Indication: PRODUCT USED FOR UNKNOWN INDICATION
     Dates: end: 20120704
  7. VERAPAMIL [Concomitant]
     Indication: PRODUCT USED FOR UNKNOWN INDICATION
  8. PROBENECID [Concomitant]
     Indication: PRODUCT USED FOR UNKNOWN INDICATION
  9. DIPHENHYDRAMINE [Concomitant]
     Indication: PRODUCT USED FOR UNKNOWN INDICATION
  10. POTASSIUM [Concomitant]
     Indication: PRODUCT USED FOR UNKNOWN INDICATION

REACTIONS (1)
  - Infusion related reaction [Recovered/Resolved]
